FAERS Safety Report 14304534 (Version 1)
Quarter: 2017Q4

REPORT INFORMATION
  Report Type: Spontaneous
  Country: JP (occurrence: JP)
  Receive Date: 20171219
  Receipt Date: 20171219
  Transmission Date: 20180321
  Serious: Yes (Hospitalization, Other)
  Sender: FDA-Public Use
  Company Number: JP-OTSUKA-010260

PATIENT
  Age: 51 Year
  Sex: Female
  Weight: 65.7 kg

DRUGS (30)
  1. CYMBALTA [Suspect]
     Active Substance: DULOXETINE HYDROCHLORIDE
     Dosage: 10JUN10:1200MG/D  10JUN-16JUN10:20MG;QD  17JUN10:40MG/D  60MG/D
     Route: 048
     Dates: start: 20100610, end: 20100630
  2. SILECE [Concomitant]
     Active Substance: FLUNITRAZEPAM
     Dosage: 2 MG, QD
     Route: 048
     Dates: end: 20100630
  3. CRESTOR [Concomitant]
     Active Substance: ROSUVASTATIN CALCIUM
     Dosage: 2.5 MG, QD
     Route: 048
     Dates: start: 200807
  4. ABILIFY [Suspect]
     Active Substance: ARIPIPRAZOLE
     Indication: DEPRESSION
     Dosage: 6 MG, BID
     Route: 048
     Dates: end: 20100617
  5. REMERON [Suspect]
     Active Substance: MIRTAZAPINE
     Dosage: 30 MG, QD
     Route: 048
     Dates: start: 20100610, end: 20100704
  6. MIRTAZAPINE. [Suspect]
     Active Substance: MIRTAZAPINE
     Dosage: 10JUN10:45MG/D  10JUN-04JUL10:30MG DAILY;25D  JUL10:15MG DAILY   TILL 09JUN10:15MG TID
     Route: 048
  7. GASMOTIN [Concomitant]
     Active Substance: MOSAPRIDE CITRATE
     Dosage: 15 MG, QD
     Route: 048
     Dates: start: 20060519
  8. URSO [Concomitant]
     Active Substance: URSODIOL
     Dosage: 600 MG, QD
     Route: 048
     Dates: start: 201002
  9. BRUFEN [Concomitant]
     Active Substance: IBUPROFEN
     Dosage: 200 MG, QD
     Route: 048
  10. FLUNITRAZEPAM [Concomitant]
     Active Substance: FLUNITRAZEPAM
     Dosage: 1 MG, UNK
     Dates: end: 20100630
  11. ABILIFY [Suspect]
     Active Substance: ARIPIPRAZOLE
     Dosage: 6 MG, QD
     Route: 048
     Dates: start: 201007
  12. REMERON [Suspect]
     Active Substance: MIRTAZAPINE
     Dosage: 15 MG, TID
     Route: 048
     Dates: end: 20100609
  13. REMERON [Suspect]
     Active Substance: MIRTAZAPINE
     Dosage: 15 MG, QD
     Route: 048
     Dates: start: 201007
  14. LIMAS [Concomitant]
     Active Substance: LITHIUM CARBONATE
     Dosage: 1200 MG, QD
     Route: 048
     Dates: start: 20100520, end: 20100704
  15. TERNELIN [Concomitant]
     Active Substance: TIZANIDINE
     Dosage: 1 MG, QD
     Route: 048
  16. CYMBALTA [Suspect]
     Active Substance: DULOXETINE HYDROCHLORIDE
     Dosage: 60 MG, QD
     Route: 048
  17. TAKEPRON [Concomitant]
     Active Substance: LANSOPRAZOLE
     Dosage: 15 MG, QD
     Route: 065
     Dates: start: 20060519
  18. ALOSITOL [Concomitant]
     Active Substance: ALLOPURINOL
     Dosage: 200 MG, QD
     Route: 048
     Dates: start: 200907
  19. TERRANAS [Concomitant]
     Active Substance: LOMERIZINE HYDROCHLORIDE
     Dosage: 20 MG, QD
     Route: 048
  20. NAUZELIN [Concomitant]
     Active Substance: DOMPERIDONE
     Dosage: 10 MG, QD
     Route: 065
  21. HYTHIOL [Concomitant]
     Dosage: 240 MG, QD
     Route: 048
  22. TENORMIN [Concomitant]
     Active Substance: ATENOLOL
     Dosage: 50 MG, QD
     Route: 048
     Dates: start: 200710
  23. TRANSAMIN [Concomitant]
     Active Substance: TRANEXAMIC ACID
     Dosage: 750 MG, QD
     Route: 065
  24. LIMAS [Concomitant]
     Active Substance: LITHIUM CARBONATE
     Dosage: 600 MG, QD
     Route: 048
     Dates: start: 201007
  25. IBUPROFEN. [Concomitant]
     Active Substance: IBUPROFEN
  26. CYMBALTA [Suspect]
     Active Substance: DULOXETINE HYDROCHLORIDE
     Dosage: 20 MG, QD
     Route: 048
     Dates: start: 20100610, end: 20100616
  27. CYMBALTA [Suspect]
     Active Substance: DULOXETINE HYDROCHLORIDE
     Dosage: 40 MG, QD
     Route: 048
     Dates: start: 20100617
  28. DEPAS [Concomitant]
     Active Substance: ETIZOLAM
     Dosage: 0.5 MG, QD
     Route: 048
  29. CYSTEINE [Concomitant]
     Active Substance: CYSTEINE
  30. ABILIFY [Suspect]
     Active Substance: ARIPIPRAZOLE
     Dosage: 12 MG, QD
     Route: 048

REACTIONS (1)
  - Serotonin syndrome [Recovered/Resolved with Sequelae]

NARRATIVE: CASE EVENT DATE: 20100629
